FAERS Safety Report 24571700 (Version 1)
Quarter: 2024Q4

REPORT INFORMATION
  Report Type: Spontaneous
  Country: CN (occurrence: CN)
  Receive Date: 20241101
  Receipt Date: 20241101
  Transmission Date: 20250115
  Serious: Yes (Congenital Anomaly, Other)
  Sender: JOHNSON AND JOHNSON
  Company Number: CN-JNJFOC-20241078353

PATIENT

DRUGS (1)
  1. REMICADE [Suspect]
     Active Substance: INFLIXIMAB
     Indication: Behaviour disorder
     Route: 064
     Dates: start: 20240911, end: 20240911

REACTIONS (3)
  - Neoplasm malignant [Unknown]
  - Teratogenicity [Unknown]
  - Foetal exposure during pregnancy [Unknown]
